FAERS Safety Report 8186670-3 (Version None)
Quarter: 2012Q1

REPORT INFORMATION
  Report Type: 
  Country: None (occurrence: None)
  Receive Date: 20120306
  Receipt Date: 20120221
  Transmission Date: 20120608
  Serious: Yes (Death, Other)
  Sender: FDA-Public Use
  Company Number: IT-CELGENEUS-083-20785-11070420

PATIENT

DRUGS (4)
  1. PANOBINOSTAT [Suspect]
     Indication: MULTIPLE MYELOMA
     Dosage: 15 MILLIGRAM
     Route: 048
  2. MELPHALAN HYDROCHLORIDE [Concomitant]
     Indication: MULTIPLE MYELOMA
     Dosage: .18 MILLIGRAM/KILOGRAM
     Route: 048
  3. THALIDOMIDE [Suspect]
     Indication: MULTIPLE MYELOMA
     Dosage: 50 MILLIGRAM
     Route: 048
  4. PREDNISONE TAB [Concomitant]
     Indication: MULTIPLE MYELOMA
     Dosage: 1.5 MILLIGRAM/KILOGRAM
     Route: 048

REACTIONS (16)
  - ATRIAL FIBRILLATION [None]
  - ANAEMIA [None]
  - CARDIOVASCULAR DISORDER [None]
  - ARRHYTHMIA [None]
  - GENERAL SYMPTOM [None]
  - CONSTIPATION [None]
  - FEBRILE NEUTROPENIA [None]
  - EMBOLISM [None]
  - GASTROINTESTINAL TOXICITY [None]
  - MULTIPLE MYELOMA [None]
  - NEUROPATHY PERIPHERAL [None]
  - NEUTROPENIA [None]
  - INFECTION [None]
  - THROMBOCYTOPENIA [None]
  - FATIGUE [None]
  - SEPSIS [None]
